FAERS Safety Report 6206579-1 (Version None)
Quarter: 2009Q2

REPORT INFORMATION
  Report Type: 
  Country: None (occurrence: None)
  Receive Date: 20090528
  Receipt Date: 20090522
  Transmission Date: 20091009
  Serious: No
  Sender: FDA-Public Use
  Company Number: US-B.I. PHARMACEUTICALS,INC./RIDGEFIELD-2009-BP-06455BP

PATIENT
  Sex: Male

DRUGS (4)
  1. SPIRIVA [Suspect]
     Indication: CHRONIC OBSTRUCTIVE PULMONARY DISEASE
     Dosage: 18MCG
     Route: 055
     Dates: start: 20090518, end: 20090522
  2. COREG [Concomitant]
     Indication: CARDIAC FAILURE
     Route: 048
  3. RAMIPRIL [Concomitant]
     Indication: CARDIAC FAILURE
     Route: 048
  4. COUMADIN [Concomitant]
     Indication: HEART VALVE REPLACEMENT
     Route: 048

REACTIONS (1)
  - PROTHROMBIN LEVEL INCREASED [None]
